FAERS Safety Report 5644772-7 (Version None)
Quarter: 2008Q1

REPORT INFORMATION
  Report Type: 
  Country: None (occurrence: None)
  Receive Date: 20080229
  Receipt Date: 20071212
  Transmission Date: 20080703
  Serious: No
  Sender: FDA-Public Use
  Company Number: A0666550A

PATIENT
  Age: 27 Year
  Sex: Female
  Weight: 63.6 kg

DRUGS (4)
  1. VALTREX [Suspect]
     Indication: GENITAL HERPES
     Dosage: 1G PER DAY
     Route: 048
     Dates: start: 20061201
  2. WELLBUTRIN [Suspect]
     Indication: DEPRESSION
     Dosage: 300MG PER DAY
     Route: 048
     Dates: start: 20070101
  3. SYNTHROID [Concomitant]
     Indication: HYPOTHYROIDISM
     Dosage: .1MG PER DAY
     Route: 048
     Dates: start: 20061201
  4. VITAMIN AND MINERAL PRENATAL SUPPLEMENT W/ FOLIC ACID CAP [Concomitant]
     Indication: VITAMIN SUPPLEMENTATION
     Dosage: 1TAB PER DAY
     Route: 048
     Dates: start: 20061201, end: 20071001

REACTIONS (2)
  - DRUG EXPOSURE DURING PREGNANCY [None]
  - DRUG INEFFECTIVE [None]
